FAERS Safety Report 4796531-5 (Version None)
Quarter: 2005Q4

REPORT INFORMATION
  Report Type: 
  Country: None (occurrence: None)
  Receive Date: 20051011
  Receipt Date: 20040824
  Transmission Date: 20060501
  Serious: Yes (Other)
  Sender: FDA-Public Use
  Company Number: 2004-BP-03715BP

PATIENT
  Age: 62 Year
  Sex: Female

DRUGS (9)
  1. CATAPRES [Suspect]
     Indication: HYPERTENSION
     Dosage: 0.9 MG (7.5 MG,3 PATCHES Q WEEK), TO
     Route: 061
     Dates: start: 20040413
  2. LISINOPRIL [Concomitant]
  3. LOPRESSOR [Concomitant]
  4. HYDROCHLOROTHIAZIDE [Concomitant]
  5. COREG [Concomitant]
  6. ACETYLSALICYLIC ACID SRT [Concomitant]
  7. NPH INSULIN 9INSULIN INJECTION, ISOPHANE) [Concomitant]
  8. REGULAR INSULIN [Concomitant]
  9. DURAGESIC-100 [Concomitant]

REACTIONS (1)
  - BLOOD PRESSURE INCREASED [None]
